FAERS Safety Report 9511583 (Version 1)
Quarter: 2013Q3

REPORT INFORMATION
  Report Type: Report from Study
  Country: AR (occurrence: AR)
  Receive Date: 20130910
  Receipt Date: 20130910
  Transmission Date: 20140515
  Serious: Yes (Hospitalization, Other)
  Sender: FDA-Public Use
  Company Number: PHHY2013AR098442

PATIENT
  Sex: Female

DRUGS (3)
  1. DIOVAN [Suspect]
     Indication: BLOOD PRESSURE ABNORMAL
     Dosage: 160 MG, BID
     Route: 048
     Dates: start: 201307
  2. DIOVAN [Suspect]
     Dosage: 0.5 DF (80 MG), UNK
     Dates: start: 20130902
  3. DIOVAN [Suspect]
     Dosage: 1 DF (160 MG), UNK

REACTIONS (10)
  - Malaise [Recovered/Resolved]
  - Ischaemia [Recovered/Resolved]
  - Neuromyopathy [Recovered/Resolved]
  - Aphasia [Recovered/Resolved]
  - Hypokinesia [Recovered/Resolved]
  - Feeling abnormal [Recovered/Resolved]
  - Blood pressure systolic increased [Recovering/Resolving]
  - Influenza [Recovering/Resolving]
  - Blood pressure decreased [Unknown]
  - Wrong technique in drug usage process [Unknown]
